FAERS Safety Report 19971963 (Version 1)
Quarter: 2021Q4

REPORT INFORMATION
  Report Type: Spontaneous
  Country: IT (occurrence: IT)
  Receive Date: 20211019
  Receipt Date: 20211019
  Transmission Date: 20220303
  Serious: Yes (Other)
  Sender: FDA-Public Use
  Company Number: IT-ABBVIE-21K-083-4125691-00

PATIENT
  Age: 11 Year
  Sex: Male

DRUGS (3)
  1. VALPROATE SODIUM [Suspect]
     Active Substance: VALPROATE SODIUM
     Indication: Epilepsy
     Route: 048
     Dates: start: 20170401
  2. RISPERIDONE [Suspect]
     Active Substance: RISPERIDONE
     Indication: Epilepsy
     Route: 048
     Dates: start: 20170401, end: 20181221
  3. RISPERIDONE [Suspect]
     Active Substance: RISPERIDONE
     Route: 065

REACTIONS (3)
  - Facial paresis [Recovered/Resolved]
  - Tremor [Recovered/Resolved]
  - Dyspnoea [Recovered/Resolved]

NARRATIVE: CASE EVENT DATE: 20181221
